FAERS Safety Report 21771951 (Version 1)
Quarter: 2022Q4

REPORT INFORMATION
  Report Type: Report from Study
  Country: PL (occurrence: None)
  Receive Date: 20221223
  Receipt Date: 20221223
  Transmission Date: 20230112
  Serious: Yes (Death)
  Sender: FDA-Public Use
  Company Number: PL-ROCHE-3247772

PATIENT
  Sex: Male

DRUGS (3)
  1. ATEZOLIZUMAB [Suspect]
     Active Substance: ATEZOLIZUMAB
     Indication: Small cell lung cancer extensive stage
     Dosage: AS PER PROTOCOL?THE START DATE OF MOST RECENT DOSE OF ATEZOLIZUMAB (1200 MG) PRIOR TO AE AND SAE (SE
     Route: 041
  2. ETOPOSIDE [Suspect]
     Active Substance: ETOPOSIDE
     Indication: Small cell lung cancer extensive stage
     Dosage: AS PER PROTOCOL?THE START DATE OF MOST RECENT DOSE OF ETOPOSIDE (207 MG) PRIOR TO AE AND SAE (SERIOU
     Route: 042
  3. CARBOPLATIN [Suspect]
     Active Substance: CARBOPLATIN
     Indication: Small cell lung cancer extensive stage
     Dosage: AS PER PROTOCOL?CARBOPLATIN AUC 5 OVER 30 TO 60 MINUTES ON DAY 1?THE START DATE OF MOST RECENT DOSE
     Route: 042

REACTIONS (1)
  - Pneumothorax [Fatal]

NARRATIVE: CASE EVENT DATE: 20221216
